FAERS Safety Report 23275645 (Version 3)
Quarter: 2025Q3

REPORT INFORMATION
  Report Type: Spontaneous
  Country: US (occurrence: US)
  Receive Date: 20231208
  Receipt Date: 20250725
  Transmission Date: 20251021
  Serious: No
  Sender: SANOFI AVENTIS
  Company Number: US-SA-SAC20231130000120

PATIENT
  Sex: Female

DRUGS (16)
  1. DUPIXENT [Suspect]
     Active Substance: DUPILUMAB
     Indication: Dermatitis atopic
     Dosage: 300 MG, QOW
     Route: 058
     Dates: start: 20230303, end: 2023
  2. DUPIXENT [Suspect]
     Active Substance: DUPILUMAB
     Dosage: 300 MG, QOW
     Route: 058
     Dates: start: 20231003
  3. ALBUTEROL SULFATE [Concomitant]
     Active Substance: ALBUTEROL SULFATE
  4. ALBUTEROL SULFATE [Concomitant]
     Active Substance: ALBUTEROL SULFATE
  5. CLOBETASOL [Concomitant]
     Active Substance: CLOBETASOL
  6. KENALOG [Concomitant]
     Active Substance: TRIAMCINOLONE ACETONIDE
  7. LATUDA [Concomitant]
     Active Substance: LURASIDONE HYDROCHLORIDE
  8. LURASIDONE [Concomitant]
     Active Substance: LURASIDONE
  9. SOLU-MEDROL [Concomitant]
     Active Substance: METHYLPREDNISOLONE SODIUM SUCCINATE
  10. METHYLPREDNISOLONE [Concomitant]
     Active Substance: METHYLPREDNISOLONE
  11. CLOBETASOL [Concomitant]
     Active Substance: CLOBETASOL
  12. LURASIDONE HYDROCHLORIDE [Concomitant]
     Active Substance: LURASIDONE HYDROCHLORIDE
  13. KENALOG [Concomitant]
     Active Substance: TRIAMCINOLONE ACETONIDE
  14. LATUDA [Concomitant]
     Active Substance: LURASIDONE HYDROCHLORIDE
  15. SOLU-MEDROL [Concomitant]
     Active Substance: METHYLPREDNISOLONE SODIUM SUCCINATE
  16. METHYLPREDNISOLONE [Concomitant]
     Active Substance: METHYLPREDNISOLONE

REACTIONS (3)
  - Sleep disorder due to a general medical condition [Not Recovered/Not Resolved]
  - Eczema [Unknown]
  - Drug ineffective [Unknown]

NARRATIVE: CASE EVENT DATE: 20230101
